FAERS Safety Report 7306066-3 (Version None)
Quarter: 2011Q1

REPORT INFORMATION
  Report Type: 
  Country: None (occurrence: None)
  Receive Date: 20110210
  Receipt Date: 20110126
  Transmission Date: 20110831
  Serious: Yes (Hospitalization)
  Sender: FDA-Public Use
  Company Number: 026325

PATIENT
  Sex: Male

DRUGS (5)
  1. SOLDESAM [Concomitant]
  2. KEPPRA [Suspect]
     Indication: GLIOBLASTOMA
     Dosage: 2 G ORAL, ORAL
     Route: 048
     Dates: start: 20100401, end: 20101206
  3. TEMODAL [Suspect]
     Indication: GLIOBLASTOMA
     Dosage: 100 MG, ORAL, 5 DF / CYCLIC FREQUENCY, ORAL
     Route: 048
     Dates: start: 20100818, end: 20101204
  4. TEMODAL [Suspect]
     Indication: GLIOBLASTOMA
     Dosage: 100 MG, ORAL, 5 DF / CYCLIC FREQUENCY, ORAL
     Route: 048
     Dates: start: 20100922, end: 20100929
  5. ACTRAPID [Concomitant]

REACTIONS (1)
  - ANAEMIA [None]
